FAERS Safety Report 10538142 (Version 2)
Quarter: 2015Q1

REPORT INFORMATION
  Report Type: Spontaneous
  Country: GT (occurrence: GT)
  Receive Date: 20141023
  Receipt Date: 20150210
  Transmission Date: 20150720
  Serious: Yes (Hospitalization, Other)
  Sender: FDA-Public Use
  Company Number: GT-PFIZER INC-2014288871

PATIENT
  Age: 57 Year
  Sex: Male
  Weight: 92 kg

DRUGS (2)
  1. SUTENT [Suspect]
     Active Substance: SUNITINIB MALATE
     Indication: CLEAR CELL RENAL CELL CARCINOMA
     Dosage: 50 MG, ONCE DAILY CYCLIC
     Route: 048
     Dates: start: 20120317, end: 2013
  2. SUTENT [Suspect]
     Active Substance: SUNITINIB MALATE
     Dosage: 50 MG, CYCLIC (28 DAYS ON AND 14 DAYS OFF)

REACTIONS (16)
  - Malaise [Unknown]
  - Anal ulcer [Unknown]
  - Diarrhoea [Unknown]
  - Gastrointestinal pain [Unknown]
  - Tongue disorder [Unknown]
  - Pain in extremity [Unknown]
  - Aphthous stomatitis [Unknown]
  - Decreased appetite [Unknown]
  - Stomatitis [Unknown]
  - Irritable bowel syndrome [Unknown]
  - Cholecystitis infective [Unknown]
  - Chapped lips [Unknown]
  - Constipation [Unknown]
  - Cholecystitis [Unknown]
  - Mouth ulceration [Unknown]
  - Ageusia [Unknown]
